FAERS Safety Report 5399737-X (Version None)
Quarter: 2007Q3

REPORT INFORMATION
  Report Type: 
  Country: None (occurrence: None)
  Receive Date: 20070727
  Receipt Date: 20070717
  Transmission Date: 20080115
  Serious: Yes (Other)
  Sender: FDA-Public Use
  Company Number: HU-PFIZER INC-2007060728

PATIENT
  Age: 51 Year
  Sex: Female

DRUGS (3)
  1. VARENICLINE TABLETS [Suspect]
     Indication: SMOKING CESSATION THERAPY
     Route: 048
     Dates: start: 20070709, end: 20070712
  2. THIAMINE HCL [Concomitant]
     Route: 048
  3. ALPHA D3 [Concomitant]
     Route: 048

REACTIONS (5)
  - DYSPHONIA [None]
  - ENANTHEMA [None]
  - PRURITUS [None]
  - RASH [None]
  - XERODERMA [None]
